FAERS Safety Report 23959888 (Version 1)
Quarter: 2024Q2

REPORT INFORMATION
  Report Type: Spontaneous
  Country: US (occurrence: US)
  Receive Date: 20240611
  Receipt Date: 20240611
  Transmission Date: 20240716
  Serious: No
  Sender: FDA-Public Use
  Company Number: US-AMGEN-USASP2024112948

PATIENT
  Sex: Female

DRUGS (2)
  1. PROCYSBI [Suspect]
     Active Substance: CYSTEAMINE BITARTRATE
     Indication: Cystinosis
     Dosage: 675 MILLIGRAM, BID (TWO 300 MG PACKETS AND ONE 75 MG PACKET (675 MG TOTAL))
  2. PROCYSBI [Suspect]
     Active Substance: CYSTEAMINE BITARTRATE
     Dosage: 675 MILLILITER, BID (TWO 300 MG PACKETS AND ONE 75 MG PACKET (675 MG TOTAL))

REACTIONS (1)
  - Nausea [Unknown]
